FAERS Safety Report 8323315-3 (Version None)
Quarter: 2012Q2

REPORT INFORMATION
  Report Type: 
  Country: None (occurrence: None)
  Receive Date: 20120430
  Receipt Date: 20120424
  Transmission Date: 20120825
  Serious: No
  Sender: FDA-Public Use
  Company Number: US-PFIZER INC-2012083139

PATIENT
  Sex: Female

DRUGS (3)
  1. LORAZEPAM [Concomitant]
     Dosage: 1 MG, AS NEEDED (1/2-1 TAB QD PRN)
  2. LOVASTATIN [Concomitant]
     Dosage: 40 MG, 1X/DAY
  3. EFFEXOR [Suspect]
     Dosage: 37.5 MG, 1X/DAY

REACTIONS (1)
  - MALAISE [None]
